FAERS Safety Report 7445257-8 (Version None)
Quarter: 2011Q2

REPORT INFORMATION
  Report Type: 
  Country: None (occurrence: None)
  Receive Date: 20110429
  Receipt Date: 20110321
  Transmission Date: 20111010
  Serious: Yes (Hospitalization, Other)
  Sender: FDA-Public Use
  Company Number: US-BAYER-2010-002184

PATIENT
  Age: 39 Year
  Sex: Female
  Weight: 56.689 kg

DRUGS (15)
  1. LEVOTHYROXINE SODIUM [Concomitant]
     Dosage: 50 UNK, UNK
     Route: 048
  2. TOPAMAX [Concomitant]
     Dosage: 100 MG, UNK
     Route: 048
  3. STEROIDS [Concomitant]
  4. IBUPROFEN [Concomitant]
  5. ASCORBIC ACID [Concomitant]
  6. ORACEA 40MG CAPSULES [Concomitant]
     Dosage: 40 MG, UNK
     Route: 048
  7. ALLEGRA-D 12 HOUR [Concomitant]
     Route: 048
  8. LAMICTAL [Concomitant]
     Dosage: 100 MG, UNK
     Route: 048
  9. IRON [IRON] [Concomitant]
     Dosage: 325 MG, UNK
  10. YAZ [Suspect]
     Indication: ACNE
     Dosage: UNK
     Dates: start: 20070701, end: 20080501
  11. YASMIN [Suspect]
  12. VITAMIN B COMPLEX COX [Concomitant]
  13. ALBUTEROL [Concomitant]
  14. YAZ [Suspect]
     Indication: CONTRACEPTION
  15. THEOPHYLLINE-SR [Concomitant]
     Dosage: 200 MG, UNK
     Route: 048
     Dates: start: 20050101

REACTIONS (3)
  - GALLBLADDER INJURY [None]
  - CHOLELITHIASIS [None]
  - CHOLECYSTECTOMY [None]
